FAERS Safety Report 5120027-4 (Version None)
Quarter: 2006Q3

REPORT INFORMATION
  Report Type: 
  Country: None (occurrence: None)
  Receive Date: 20060929
  Receipt Date: 20060918
  Transmission Date: 20061208
  Serious: Yes (Life-Threatening, Hospitalization)
  Sender: FDA-Public Use
  Company Number: 2006-01905

PATIENT
  Age: 61 Year
  Sex: Male
  Weight: 83 kg

DRUGS (7)
  1. VELCADE [Suspect]
     Indication: T-CELL LYMPHOMA
     Dosage: 3.00  MG, INTRAVENOUS
     Route: 042
     Dates: start: 20060623, end: 20060717
  2. PREDNISONE TAB [Suspect]
     Indication: T-CELL LYMPHOMA
     Dosage: 120.00 MG, INTRAVENOUS
     Route: 042
     Dates: start: 20060623, end: 20060717
  3. CYCLOPHOSPHAMIDE [Suspect]
     Indication: T-CELL LYMPHOMA
     Dosage: 2400.00 MG, INTRAVENOUS
     Route: 042
     Dates: start: 20060623, end: 20060623
  4. DOXIL/CAELYX(DOXORUBICIN) INJECTION [Suspect]
     Indication: T-CELL LYMPHOMA
     Dosage: 150.00 MG, INTRAVENOUS
     Route: 042
     Dates: start: 20060623, end: 20060713
  5. VINDESINE SULFATE(VINDESINE SULFATE) [Suspect]
     Indication: T-CELL LYMPHOMA
     Dosage: 4.00 MG, INTRAVENOUS
     Route: 042
     Dates: start: 20060623, end: 20060717
  6. BLEOMYCIN(BLEOMYCIN) INJECTION [Suspect]
     Indication: T-CELL LYMPHOMA
     Dosage: 10.00 IU, INTRAVENOUS
     Route: 042
     Dates: start: 20060623, end: 20060717
  7. LENOGRASTIM(LENOGRASTIM) [Suspect]
     Indication: T-CELL LYMPHOMA
     Dosage: 33.69 MIU, SUBCUTANEOUS
     Route: 058
     Dates: start: 20060623, end: 20060723

REACTIONS (2)
  - HYPONATRAEMIA [None]
  - PSEUDOMONAL SEPSIS [None]
